FAERS Safety Report 13449783 (Version 1)
Quarter: 2017Q2

REPORT INFORMATION
  Report Type: Spontaneous
  Country: US (occurrence: US)
  Receive Date: 20170417
  Receipt Date: 20170417
  Transmission Date: 20170830
  Serious: No
  Sender: FDA-Public Use
  Company Number: US-BANPHARM-20164774

PATIENT
  Age: 62 Year
  Sex: Male
  Weight: 96.62 kg

DRUGS (2)
  1. ALEVE [Suspect]
     Active Substance: NAPROXEN SODIUM
     Indication: MYALGIA
     Dosage: PRN,
     Route: 048
  2. FISH OIL [Concomitant]
     Active Substance: FISH OIL

REACTIONS (3)
  - Drug effect incomplete [Unknown]
  - Incorrect dose administered [Unknown]
  - Extra dose administered [Unknown]
